FAERS Safety Report 9774543 (Version 2)
Quarter: 2014Q1

REPORT INFORMATION
  Report Type: Report from Study
  Country: US (occurrence: US)
  Receive Date: 20131220
  Receipt Date: 20140116
  Transmission Date: 20141002
  Serious: Yes (Hospitalization)
  Sender: FDA-Public Use
  Company Number: US-US-EMD SERONO, INC.-7257794

PATIENT
  Age: 25 Year
  Sex: Female
  Weight: 114 kg

DRUGS (1)
  1. REBIF [Suspect]
     Indication: MULTIPLE SCLEROSIS
     Route: 058
     Dates: start: 20131014

REACTIONS (6)
  - Anger [Recovering/Resolving]
  - Cognitive disorder [Unknown]
  - Urinary tract infection [Unknown]
  - Dizziness [Recovering/Resolving]
  - Hypothyroidism [Not Recovered/Not Resolved]
  - Injection site bruising [Not Recovered/Not Resolved]
